FAERS Safety Report 20361006 (Version 1)
Quarter: 2022Q1

REPORT INFORMATION
  Report Type: Report from Study
  Country: CA (occurrence: CA)
  Receive Date: 20220121
  Receipt Date: 20220121
  Transmission Date: 20220423
  Serious: Yes (Other)
  Sender: FDA-Public Use
  Company Number: None

PATIENT
  Age: 82 Year
  Sex: Male

DRUGS (18)
  1. MYCOPHENOLATE MOFETIL [Suspect]
     Active Substance: MYCOPHENOLATE MOFETIL
     Indication: Idiopathic pulmonary fibrosis
     Dosage: 2 EVERY 1 DAYS
     Route: 065
  2. ESBRIET [Suspect]
     Active Substance: PIRFENIDONE
     Indication: Idiopathic pulmonary fibrosis
     Dosage: 2 EVERY 1 DAYS
     Route: 065
  3. AMLODIPINE BESYLATE [Concomitant]
     Active Substance: AMLODIPINE BESYLATE
     Dosage: 1 EVERY 1 DAYS
     Route: 048
  4. BISOPROLOL FUMARATE [Concomitant]
     Active Substance: BISOPROLOL FUMARATE
     Dosage: 1 EVERY 1 DAYS
     Route: 065
  5. BUDESONIDE [Concomitant]
     Active Substance: BUDESONIDE
     Dosage: 1 EVERY 1 DAYS
     Route: 065
  6. CLOPIDOGREL BISULFATE [Concomitant]
     Active Substance: CLOPIDOGREL BISULFATE
     Dosage: 1 EVERY 1 DAYS
     Route: 048
  7. DIBUCAINE [Concomitant]
     Active Substance: DIBUCAINE
  8. ESCULIN [Concomitant]
     Active Substance: ESCULIN
  9. GLIMEPIRIDE [Concomitant]
     Active Substance: GLIMEPIRIDE
     Dosage: 1 EVERY 1 DAYS
     Route: 048
  10. HYDROCORTISONE [Concomitant]
     Active Substance: HYDROCORTISONE
  11. LATANOPROST [Concomitant]
     Active Substance: LATANOPROST
  12. LEVOTHYROXINE SODIUM [Concomitant]
     Active Substance: LEVOTHYROXINE SODIUM
     Dosage: 1 EVERY 1 DAYS
     Route: 065
  13. METFORMIN [Concomitant]
     Active Substance: METFORMIN HYDROCHLORIDE
     Dosage: 2 EVERY 1 DAYS
     Route: 048
  14. NITROGLYCERIN [Concomitant]
     Active Substance: NITROGLYCERIN
  15. PANTOPRAZOLE [Concomitant]
     Active Substance: PANTOPRAZOLE
     Dosage: 1 EVERY 2 DAYS
     Route: 065
  16. PAROXETINE HYDROCHLORIDE [Concomitant]
     Active Substance: PAROXETINE HYDROCHLORIDE
     Dosage: 1 EVERY 1 DAYS
     Route: 065
  17. QUINAPRIL HYDROCHLORIDE [Concomitant]
     Active Substance: QUINAPRIL HYDROCHLORIDE
     Dosage: 2 EVERY 1 DAYS
     Route: 065
  18. ROSUVASTATIN CALCIUM [Concomitant]
     Active Substance: ROSUVASTATIN CALCIUM
     Dosage: 1 EVERY 1 DAYS
     Route: 065

REACTIONS (8)
  - Abdominal pain upper [Not Recovered/Not Resolved]
  - Blood urine present [Not Recovered/Not Resolved]
  - Chromaturia [Not Recovered/Not Resolved]
  - Cough [Not Recovered/Not Resolved]
  - Lung disorder [Not Recovered/Not Resolved]
  - Paranasal sinus hypersecretion [Not Recovered/Not Resolved]
  - Productive cough [Not Recovered/Not Resolved]
  - Off label use [Unknown]
